FAERS Safety Report 6934696-7 (Version None)
Quarter: 2010Q3

REPORT INFORMATION
  Report Type: 
  Country: None (occurrence: None)
  Receive Date: 20100820
  Receipt Date: 20100812
  Transmission Date: 20110219
  Serious: Yes (Other)
  Sender: FDA-Public Use
  Company Number: GB-AMGEN-QUU431605

PATIENT
  Sex: Male

DRUGS (1)
  1. ENBREL [Suspect]
     Indication: PRODUCT USED FOR UNKNOWN INDICATION
     Dosage: 50MG, FREQUENCY UNKNOWN
     Dates: start: 20100301

REACTIONS (3)
  - DYSPNOEA [None]
  - HYPERHIDROSIS [None]
  - RETCHING [None]
